FAERS Safety Report 9575896 (Version 1)
Quarter: 2013Q4

REPORT INFORMATION
  Report Type: Spontaneous
  Country: US (occurrence: US)
  Receive Date: 20131001
  Receipt Date: 20131001
  Transmission Date: 20140711
  Serious: No
  Sender: FDA-Public Use
  Company Number: US-AMGEN-USASP2013000374

PATIENT
  Age: 62 Year
  Sex: Male
  Weight: 73.47 kg

DRUGS (8)
  1. PROCRIT [Suspect]
     Indication: ANAEMIA
     Dosage: UNK
     Route: 058
     Dates: start: 2010
  2. AMLODIPINE [Concomitant]
     Indication: BLOOD PRESSURE
     Dosage: 10 MG, QD
     Route: 048
     Dates: start: 2007
  3. HYDROCHLOROTHIAZIDE [Concomitant]
     Indication: RENAL FAILURE
     Dosage: 6.25/TABLE/6.25MG/ONCE DAILY/ORAL
     Route: 048
     Dates: start: 2009
  4. TEKTURNA [Concomitant]
     Indication: BLOOD PRESSURE
     Dosage: 15 MG, QD
     Route: 048
     Dates: start: 2008
  5. SIMVASTATIN [Concomitant]
     Indication: BLOOD CHOLESTEROL
     Dosage: 20/TABLE/20 MG/ONCE DAILY/ORAL
     Route: 048
     Dates: start: 2007
  6. CARVEDILOL [Concomitant]
     Indication: HEART RATE DECREASED
     Dosage: 6.25/TABLE/6.25MG/ONCE DAILY/ORAL
     Route: 048
     Dates: start: 2007
  7. GLIPIZIDE [Concomitant]
     Indication: DIABETES MELLITUS
     Dosage: 5MG/TABLE/5MG/ONCE DAILY/ORAL
     Route: 048
     Dates: start: 2008
  8. CLONIDINE [Concomitant]
     Indication: BLOOD PRESSURE
     Dosage: 0.2 MG, QWK
     Route: 062
     Dates: start: 2010

REACTIONS (2)
  - Expired drug administered [Unknown]
  - Blood sodium increased [Unknown]
